FAERS Safety Report 10262608 (Version 2)
Quarter: 2014Q2

REPORT INFORMATION
  Report Type: Report from Study
  Country: US (occurrence: US)
  Receive Date: 20140626
  Receipt Date: 20140626
  Transmission Date: 20141212
  Serious: Yes (Hospitalization, Other)
  Sender: FDA-Public Use
  Company Number: US-MPIJNJ-2012-05900

PATIENT
  Age: 47 Year
  Sex: Female
  Weight: 86.2 kg

DRUGS (1)
  1. VELCADE [Suspect]
     Indication: PLASMA CELL MYELOMA
     Dosage: 2 MG, D1,Q4WEEKS
     Route: 042
     Dates: start: 20110509, end: 20111205

REACTIONS (2)
  - Abdominal rigidity [Recovered/Resolved]
  - Constipation [Recovered/Resolved]
